FAERS Safety Report 16040757 (Version 1)
Quarter: 2019Q1

REPORT INFORMATION
  Report Type: Spontaneous
  Country: US (occurrence: US)
  Receive Date: 20190306
  Receipt Date: 20190306
  Transmission Date: 20190418
  Serious: No
  Sender: FDA-Public Use
  Company Number: US-VIVIMED-2018SP005636

PATIENT

DRUGS (8)
  1. METRONIDAZOLE. [Suspect]
     Active Substance: METRONIDAZOLE
     Indication: ENCEPHALOPATHY NEONATAL
     Dosage: 30 MG/KG/DAY, DIVIDED TWICE A DAY
     Route: 065
  2. METRONIDAZOLE. [Suspect]
     Active Substance: METRONIDAZOLE
     Indication: HYPOTONIA
  3. NEOMYCIN. [Concomitant]
     Active Substance: NEOMYCIN
     Indication: ENCEPHALOPATHY NEONATAL
     Dosage: 50 MG/KG/DAY, DIVIDED TWICE A DAY
     Route: 065
  4. ASCORBIC ACID. [Concomitant]
     Active Substance: ASCORBIC ACID
     Indication: ENCEPHALOPATHY NEONATAL
     Dosage: 100 MG, BID
     Route: 065
  5. ASCORBIC ACID. [Concomitant]
     Active Substance: ASCORBIC ACID
     Indication: HYPOTONIA
  6. NAC                                /00082801/ [Concomitant]
     Active Substance: ACETYLCYSTEINE
     Indication: HYPOTONIA
  7. NAC                                /00082801/ [Concomitant]
     Active Substance: ACETYLCYSTEINE
     Indication: ENCEPHALOPATHY NEONATAL
     Dosage: 105 MG/KG/DAY, DIVIDED THREE TIMES PER DAY
     Route: 065
  8. NEOMYCIN. [Concomitant]
     Active Substance: NEOMYCIN
     Indication: HYPOTONIA

REACTIONS (1)
  - Off label use [Unknown]
